FAERS Safety Report 6689795-4 (Version None)
Quarter: 2010Q2

REPORT INFORMATION
  Report Type: 
  Country: None (occurrence: None)
  Receive Date: 20100421
  Receipt Date: 20100412
  Transmission Date: 20101027
  Serious: Yes (Other)
  Sender: FDA-Public Use
  Company Number: US-ASTRAZENECA-2009UW18026

PATIENT
  Sex: Male
  Weight: 84.8 kg

DRUGS (5)
  1. SEROQUEL [Suspect]
     Route: 048
     Dates: start: 20080211
  2. CHLORPHENIRAMINE MALEATE [Concomitant]
     Dates: start: 20080211
  3. OXYCODONE [Concomitant]
     Dates: start: 20080211
  4. XANAX [Concomitant]
     Dates: start: 20080211
  5. FLUOXETINE [Concomitant]
     Dates: start: 20080211

REACTIONS (2)
  - DIABETIC NEUROPATHY [None]
  - TYPE 2 DIABETES MELLITUS [None]
